FAERS Safety Report 5705494-7 (Version None)
Quarter: 2008Q2

REPORT INFORMATION
  Report Type: 
  Country: None (occurrence: None)
  Receive Date: 20080411
  Receipt Date: 20080402
  Transmission Date: 20081010
  Serious: Yes (Hospitalization)
  Sender: FDA-Public Use
  Company Number: 163-21880-08010841

PATIENT
  Age: 64 Year
  Sex: Female

DRUGS (5)
  1. REVLIMID [Suspect]
     Indication: MULTIPLE MYELOMA
     Dosage: 25 MG, 1 IN 1 D, ORAL
     Route: 048
     Dates: start: 20071229, end: 20080112
  2. VELCADE [Suspect]
     Indication: MULTIPLE MYELOMA
     Dates: start: 20071228
  3. DEXAMETHASONE TAB [Suspect]
     Indication: MULTIPLE MYELOMA
     Dates: start: 20071228
  4. WARFARIN SODIUM [Concomitant]
  5. VALTREX [Concomitant]

REACTIONS (8)
  - CEREBROVASCULAR ACCIDENT [None]
  - CONVULSION [None]
  - CYTOMEGALOVIRUS INFECTION [None]
  - HAEMORRHAGE [None]
  - INFECTION [None]
  - INTERNATIONAL NORMALISED RATIO INCREASED [None]
  - NEUROPATHY PERIPHERAL [None]
  - PYREXIA [None]
